FAERS Safety Report 25395860 (Version 1)
Quarter: 2025Q2

REPORT INFORMATION
  Report Type: Spontaneous
  Country: US (occurrence: None)
  Receive Date: 20250603
  Receipt Date: 20250603
  Transmission Date: 20250716
  Serious: Yes (Hospitalization)
  Sender: FDA-CTU
  Company Number: None

PATIENT
  Age: 73 Year
  Sex: Male

DRUGS (18)
  1. TACROLIMUS [Suspect]
     Active Substance: TACROLIMUS
     Indication: Prophylaxis against transplant rejection
     Dosage: FREQUENCY : DAILY;?
     Route: 048
  2. MYCOPHENOLATE MOFETIL [Suspect]
     Active Substance: MYCOPHENOLATE MOFETIL
     Dosage: FREQUENCY : DAILY;?
     Route: 048
  3. Aspirin 81 EC TABS [Concomitant]
  4. Azithromycin 250 mg tabs [Concomitant]
  5. Calcium Citrate+ D3 TABS [Concomitant]
  6. Carvedilol  6.25 mg tabs [Concomitant]
  7. Famciclovir 500 mg tabs [Concomitant]
  8. Itraconazole 10 mg / ml soln [Concomitant]
  9. Latanaprost 0.005 % eye drops [Concomitant]
  10. Mag Oxide 400 mg tabs [Concomitant]
  11. METOPROLOL SUCCINATE [Concomitant]
     Active Substance: METOPROLOL SUCCINATE
  12. OMEPRAZOLE 40 MG CAPS [Concomitant]
  13. parconazole 100 MG DR TABS [Concomitant]
  14. PREDNISONE [Concomitant]
     Active Substance: PREDNISONE
  15. Rosuvastatin 10 mg tabs [Concomitant]
  16. Senna8.6 mg tabs [Concomitant]
  17. Valganciclovir 450 mg tabs [Concomitant]
  18. Sulfameth/Trimeth 400mg/80 mg tabs [Concomitant]

REACTIONS (3)
  - Hypertension [None]
  - Fungal infection [None]
  - Pulmonary oedema [None]

NARRATIVE: CASE EVENT DATE: 20250513
